FAERS Safety Report 17725957 (Version 7)
Quarter: 2020Q3

REPORT INFORMATION
  Report Type: Spontaneous
  Country: US (occurrence: US)
  Receive Date: 20200429
  Receipt Date: 20200817
  Transmission Date: 20201102
  Serious: Yes (Death, Hospitalization)
  Sender: FDA-Public Use
  Company Number: US-CELGENEUS-USA-20200408794

PATIENT
  Age: 75 Year
  Sex: Male

DRUGS (3)
  1. THALOMID [Suspect]
     Active Substance: THALIDOMIDE
     Indication: NEOPLASM MALIGNANT
     Dosage: 100 MILLIGRAM
     Route: 048
     Dates: start: 201607
  2. THALOMID [Suspect]
     Active Substance: THALIDOMIDE
     Indication: ANAEMIA
     Dosage: 100 MILLIGRAM
     Route: 048
     Dates: start: 20170628
  3. THALOMID [Suspect]
     Active Substance: THALIDOMIDE
     Indication: OFF LABEL USE
     Dosage: 100 MILLIGRAM
     Route: 048
     Dates: start: 20190904, end: 20200313

REACTIONS (5)
  - Pulmonary oedema [Not Recovered/Not Resolved]
  - Pneumonia [Not Recovered/Not Resolved]
  - Dysphagia [Not Recovered/Not Resolved]
  - Respiratory failure [Fatal]
  - Cardiac failure [Fatal]

NARRATIVE: CASE EVENT DATE: 20200309
